FAERS Safety Report 7077761-9 (Version None)
Quarter: 2010Q4

REPORT INFORMATION
  Report Type: 
  Country: None (occurrence: None)
  Receive Date: 20101101
  Receipt Date: 20101015
  Transmission Date: 20110411
  Serious: Yes (Hospitalization)
  Sender: FDA-Public Use
  Company Number: PHHY2010US72099

PATIENT
  Sex: Female
  Weight: 99.5 kg

DRUGS (1)
  1. CGP 57148B T35717+ [Suspect]
     Indication: CHRONIC MYELOID LEUKAEMIA
     Dosage: 300 MG, QD
     Route: 048
     Dates: start: 20100305

REACTIONS (3)
  - HEADACHE [None]
  - ISCHAEMIC CEREBRAL INFARCTION [None]
  - VISION BLURRED [None]
